FAERS Safety Report 7647312-6 (Version None)
Quarter: 2011Q3

REPORT INFORMATION
  Report Type: 
  Country: None (occurrence: None)
  Receive Date: 20110801
  Receipt Date: 20110721
  Transmission Date: 20111222
  Serious: Yes (Life-Threatening, Hospitalization)
  Sender: FDA-Public Use
  Company Number: AU-ROCHE-789234

PATIENT
  Sex: Female
  Weight: 76 kg

DRUGS (3)
  1. INSULIN [Concomitant]
     Dosage: FREQUENCY : DAILY.
     Route: 058
     Dates: start: 20100101
  2. RIBAVIRIN [Suspect]
     Indication: HEPATITIS C
     Dosage: DOSE : 400 MG OR 200 MG DAILY.
     Route: 048
     Dates: start: 20110315, end: 20110627
  3. PEGASYS [Suspect]
     Indication: HEPATITIS C
     Route: 058
     Dates: start: 20110315, end: 20110627

REACTIONS (2)
  - RESPIRATORY ARREST [None]
  - PHARYNGEAL ABSCESS [None]
